FAERS Safety Report 5690201-7 (Version None)
Quarter: 2008Q1

REPORT INFORMATION
  Report Type: 
  Country: None (occurrence: None)
  Receive Date: 20080331
  Receipt Date: 20080331
  Transmission Date: 20080703
  Serious: Yes (Other)
  Sender: FDA-Public Use
  Company Number: None

PATIENT
  Age: 40 Year
  Sex: Female
  Weight: 92.9874 kg

DRUGS (3)
  1. SINGULAIR [Suspect]
     Indication: ASTHMA
     Dosage: 10MG 1/DAY PO
     Route: 048
     Dates: start: 20070201, end: 20080115
  2. EFFEXOR XR [Suspect]
     Indication: GENERALISED ANXIETY DISORDER
     Dosage: 100MG 2/DAY PO
     Route: 048
     Dates: start: 20040201
  3. EFFEXOR XR [Suspect]
     Indication: STRESS
     Dosage: 100MG 2/DAY PO
     Route: 048
     Dates: start: 20040201

REACTIONS (14)
  - AGGRESSION [None]
  - ALOPECIA [None]
  - ANGER [None]
  - ANXIETY [None]
  - DEPRESSED MOOD [None]
  - DISSOCIATION [None]
  - DIZZINESS [None]
  - DRUG WITHDRAWAL SYNDROME [None]
  - INSOMNIA [None]
  - MOOD SWINGS [None]
  - NIGHTMARE [None]
  - PANIC ATTACK [None]
  - POISONING [None]
  - POST-TRAUMATIC STRESS DISORDER [None]
